FAERS Safety Report 8060428-8 (Version None)
Quarter: 2012Q1

REPORT INFORMATION
  Report Type: 
  Country: None (occurrence: None)
  Receive Date: 20120120
  Receipt Date: 20120110
  Transmission Date: 20120608
  Serious: Yes (Hospitalization)
  Sender: FDA-Public Use
  Company Number: FR-GLAXOSMITHKLINE-B0725055A

PATIENT
  Sex: Female

DRUGS (19)
  1. CLINDAMYCIN HCL [Suspect]
     Indication: TOXOPLASMOSIS
     Dosage: 600MG THREE TIMES PER DAY
     Route: 048
     Dates: start: 20110218, end: 20110222
  2. FOLIC ACID [Concomitant]
     Dosage: 10MG PER DAY
     Dates: start: 20110131
  3. OFLOXACIN [Concomitant]
     Dates: start: 20110213, end: 20110213
  4. STABLON [Concomitant]
  5. ZOVIRAX [Concomitant]
     Route: 042
     Dates: start: 20110221, end: 20110227
  6. TARGOCID [Suspect]
     Indication: PRODUCT USED FOR UNKNOWN INDICATION
     Dosage: 800MG PER DAY
     Route: 042
     Dates: start: 20110214, end: 20110222
  7. NEULASTA [Concomitant]
     Route: 042
     Dates: start: 20110212, end: 20110213
  8. OMEPRAZOLE [Concomitant]
  9. LOVENOX [Concomitant]
  10. VALACYCLOVIR HYDROCHLORIDE [Suspect]
     Indication: PRODUCT USED FOR UNKNOWN INDICATION
     Dosage: 500MG TWICE PER DAY
     Route: 048
     Dates: start: 20110131, end: 20110221
  11. IMIPENEM AND CILASTATIN SODIUM [Suspect]
     Indication: PRODUCT USED FOR UNKNOWN INDICATION
     Route: 042
     Dates: start: 20110217, end: 20110223
  12. BACTRIM [Suspect]
     Indication: PRODUCT USED FOR UNKNOWN INDICATION
     Dosage: 1UNIT THREE TIMES PER WEEK
     Route: 048
     Dates: start: 20110131, end: 20110213
  13. CIPROFLOXACIN [Suspect]
     Indication: PRODUCT USED FOR UNKNOWN INDICATION
     Dosage: 1000MG PER DAY
     Route: 048
     Dates: start: 20110217, end: 20110222
  14. CLADRIBINE [Suspect]
     Indication: HAIRY CELL LEUKAEMIA
     Dosage: 8.5MG PER DAY
     Route: 058
     Dates: start: 20110207, end: 20110211
  15. GENTAMICIN [Concomitant]
  16. ACETAMINOPHEN W/ PROPOXYPHENE HCL [Concomitant]
  17. TERCIAN [Concomitant]
     Dates: end: 20110328
  18. ROCEPHIN [Concomitant]
     Dates: start: 20110213, end: 20110217
  19. CALCIUM CARBONATE [Concomitant]

REACTIONS (6)
  - RASH ERYTHEMATOUS [None]
  - LIVER FUNCTION TEST ABNORMAL [None]
  - DRUG RASH WITH EOSINOPHILIA AND SYSTEMIC SYMPTOMS [None]
  - RASH VESICULAR [None]
  - RASH PUSTULAR [None]
  - DRUG ERUPTION [None]
